FAERS Safety Report 4346466-7 (Version None)
Quarter: 2004Q2

REPORT INFORMATION
  Report Type: 
  Country: None (occurrence: None)
  Receive Date: 20040426
  Receipt Date: 20030429
  Transmission Date: 20050107
  Serious: No
  Sender: FDA-Public Use
  Company Number: US-BRISTOL-MYERS SQUIBB COMPANY-12258240

PATIENT
  Age: 43 Year
  Sex: Female

DRUGS (4)
  1. CARBOPLATIN [Suspect]
     Indication: OVARIAN CANCER
     Route: 042
     Dates: start: 20030422, end: 20030422
  2. BENADRYL [Concomitant]
     Indication: PREMEDICATION
     Dates: start: 20030422, end: 20030422
  3. PEPCID [Concomitant]
     Indication: PREMEDICATION
     Dates: start: 20030422, end: 20030422
  4. DECADRON [Concomitant]
     Indication: PREMEDICATION
     Dates: start: 20030422, end: 20030422

REACTIONS (4)
  - ERYTHEMA [None]
  - FLUSHING [None]
  - PALPITATIONS [None]
  - SENSORY DISTURBANCE [None]
